FAERS Safety Report 4706800-2 (Version None)
Quarter: 2005Q3

REPORT INFORMATION
  Report Type: 
  Country: None (occurrence: None)
  Receive Date: 20050705
  Receipt Date: 20050620
  Transmission Date: 20060218
  Serious: Yes (Hospitalization, Disabling, Other)
  Sender: FDA-Public Use
  Company Number: 2005085099

PATIENT
  Sex: Male

DRUGS (3)
  1. GEODON [Suspect]
     Indication: SCHIZOAFFECTIVE DISORDER
     Dosage: 80 MG (40 MG, 2 IN 1 D) ORAL
     Route: 048
     Dates: start: 20030101
  2. DEPAKOTE [Concomitant]
  3. TENEX [Concomitant]

REACTIONS (5)
  - COMPLEX PARTIAL SEIZURES [None]
  - CONVULSION [None]
  - DROOLING [None]
  - ELECTROENCEPHALOGRAM ABNORMAL [None]
  - LOSS OF CONSCIOUSNESS [None]
